FAERS Safety Report 23798410 (Version 1)
Quarter: 2024Q2

REPORT INFORMATION
  Report Type: Report from Study
  Country: GB (occurrence: GB)
  Receive Date: 20240430
  Receipt Date: 20240430
  Transmission Date: 20240716
  Serious: Yes (Other)
  Sender: FDA-Public Use
  Company Number: GB-002147023-NVSC2022GB076876

PATIENT
  Sex: Female

DRUGS (3)
  1. OMNITROPE [Suspect]
     Active Substance: SOMATROPIN
     Dosage: 0.6 MG, QD
     Route: 058
  2. OMNITROPE [Suspect]
     Active Substance: SOMATROPIN
     Indication: Hypopituitarism
     Dosage: 0.7 MG OD
     Route: 058
  3. OMNITROPE [Suspect]
     Active Substance: SOMATROPIN
     Indication: Growth hormone deficiency
     Dosage: 0.8 MG, QD (AS DIRECTED)
     Route: 058

REACTIONS (14)
  - Surgery [Unknown]
  - Restlessness [Recovered/Resolved]
  - Myalgia [Recovered/Resolved]
  - Malaise [Unknown]
  - Nasopharyngitis [Unknown]
  - Therapeutic product effect decreased [Unknown]
  - Sinusitis [Unknown]
  - Rhinorrhoea [Unknown]
  - Ear pain [Unknown]
  - Oropharyngeal pain [Unknown]
  - Headache [Unknown]
  - Peripheral swelling [Unknown]
  - Illness [Unknown]
  - Product dose omission issue [Unknown]
